FAERS Safety Report 18423823 (Version 1)
Quarter: 2020Q4

REPORT INFORMATION
  Report Type: Spontaneous
  Country: AT (occurrence: AT)
  Receive Date: 20201024
  Receipt Date: 20201024
  Transmission Date: 20210114
  Serious: Yes (Death, Other)
  Sender: FDA-Public Use
  Company Number: AT-AMGEN-AUTSP2020169199

PATIENT
  Age: 70 Year
  Sex: Male
  Weight: 65 kg

DRUGS (3)
  1. CAPECITABINE. [Concomitant]
     Active Substance: CAPECITABINE
     Indication: ADENOCARCINOMA GASTRIC
     Dosage: UNK
     Dates: start: 2016
  2. TRASTUZUMAB. [Suspect]
     Active Substance: TRASTUZUMAB
     Indication: ADENOCARCINOMA GASTRIC
     Dosage: UNK
     Route: 065
     Dates: end: 201810
  3. CISPLATIN. [Concomitant]
     Active Substance: CISPLATIN
     Indication: ADENOCARCINOMA GASTRIC
     Dosage: UNK
     Dates: start: 2016

REACTIONS (1)
  - Metastatic gastric cancer [Fatal]

NARRATIVE: CASE EVENT DATE: 201810
